FAERS Safety Report 9628897 (Version 1)
Quarter: 2013Q4

REPORT INFORMATION
  Report Type: Spontaneous
  Country: JP (occurrence: JP)
  Receive Date: 20131017
  Receipt Date: 20131017
  Transmission Date: 20140711
  Serious: Yes (Other)
  Sender: FDA-Public Use
  Company Number: PHHY2013JP113180

PATIENT
  Age: 10 Year
  Sex: Female

DRUGS (4)
  1. LEVETIRACETAM [Suspect]
     Indication: MYOCLONIC EPILEPSY
     Dosage: 250 MG/DAY
  2. LEVETIRACETAM [Suspect]
     Indication: TONIC CONVULSION
  3. TOPIRAMATE [Concomitant]
     Indication: MYOCLONIC EPILEPSY
  4. TOPIRAMATE [Concomitant]
     Indication: TONIC CONVULSION

REACTIONS (5)
  - Akinesia [Unknown]
  - Hyporesponsive to stimuli [Unknown]
  - Tonic convulsion [Unknown]
  - Myoclonic epilepsy [Unknown]
  - Psychotic disorder [Recovered/Resolved]
